FAERS Safety Report 20026911 (Version 9)
Quarter: 2021Q4

REPORT INFORMATION
  Report Type: Report from Study
  Country: ES (occurrence: ES)
  Receive Date: 20211103
  Receipt Date: 20211214
  Transmission Date: 20220303
  Serious: Yes (Other)
  Sender: FDA-Public Use
  Company Number: ES-ABBVIE-21K-144-3988136-00

PATIENT
  Sex: Female
  Weight: 58 kg

DRUGS (15)
  1. CARBIDOPA\LEVODOPA [Suspect]
     Active Substance: CARBIDOPA\LEVODOPA
     Indication: Parkinson^s disease
     Route: 050
     Dates: start: 20210623, end: 202107
  2. CARBIDOPA\LEVODOPA [Suspect]
     Active Substance: CARBIDOPA\LEVODOPA
     Dosage: DOSE INCREASED
     Route: 050
     Dates: start: 20210713, end: 20210716
  3. CARBIDOPA\LEVODOPA [Suspect]
     Active Substance: CARBIDOPA\LEVODOPA
     Dosage: DOSE INCREASED
     Route: 050
     Dates: start: 20210716, end: 20210720
  4. CARBIDOPA\LEVODOPA [Suspect]
     Active Substance: CARBIDOPA\LEVODOPA
     Dosage: LOWER THE CONTINUOUS DOSE AGAIN BY 0.2 ML / H
     Route: 050
     Dates: start: 20210720, end: 20210726
  5. CARBIDOPA\LEVODOPA [Suspect]
     Active Substance: CARBIDOPA\LEVODOPA
     Dosage: CONTINUOUS DOSE DECREASED BY 0.1 ML/H
     Route: 050
     Dates: start: 20210726, end: 20210730
  6. CARBIDOPA\LEVODOPA [Suspect]
     Active Substance: CARBIDOPA\LEVODOPA
     Dosage: CONTINUOUS DOSE DECREASED
     Route: 050
     Dates: start: 20210730, end: 20210820
  7. CARBIDOPA\LEVODOPA [Suspect]
     Active Substance: CARBIDOPA\LEVODOPA
     Dosage: CONTINUOUS DOSE DECREASED TO 2 ML/H
     Route: 050
     Dates: start: 20210820, end: 20210908
  8. CARBIDOPA\LEVODOPA [Suspect]
     Active Substance: CARBIDOPA\LEVODOPA
     Dosage: INCREASE CONTINUOUS DOSE AND DECREASE EXTRA DOSE
     Route: 050
     Dates: start: 20210908, end: 20211112
  9. CARBIDOPA\LEVODOPA [Suspect]
     Active Substance: CARBIDOPA\LEVODOPA
     Dosage: REDUCE THE CONTINUOUS DOSE TO 1.5 ML/H
     Route: 050
     Dates: start: 20211112, end: 2021
  10. CARBIDOPA\LEVODOPA [Suspect]
     Active Substance: CARBIDOPA\LEVODOPA
     Dosage: DECREASE THE CONTINUOUS DOSE TO 1.2 ML/H
     Route: 050
     Dates: start: 2021, end: 2021
  11. ROPINIROLE [Concomitant]
     Active Substance: ROPINIROLE
     Indication: Product used for unknown indication
  12. ROPINIROLE [Concomitant]
     Active Substance: ROPINIROLE
     Dates: start: 20210820
  13. XADAGO [Concomitant]
     Active Substance: SAFINAMIDE MESYLATE
     Indication: Product used for unknown indication
     Route: 048
  14. XADAGO [Concomitant]
     Active Substance: SAFINAMIDE MESYLATE
     Route: 048
     Dates: start: 20210820, end: 202111
  15. AZILECT [Concomitant]
     Active Substance: RASAGILINE MESYLATE
     Indication: Product used for unknown indication

REACTIONS (21)
  - Foot deformity [Unknown]
  - Acquired claw toe [Recovered/Resolved]
  - General physical health deterioration [Unknown]
  - Feeling abnormal [Unknown]
  - Bradykinesia [Not Recovered/Not Resolved]
  - Poor quality sleep [Unknown]
  - Condition aggravated [Unknown]
  - Electromyogram abnormal [Unknown]
  - Muscle spasms [Recovering/Resolving]
  - Muscle spasms [Recovered/Resolved]
  - Malaise [Not Recovered/Not Resolved]
  - Dystonia [Not Recovered/Not Resolved]
  - Therapeutic product effect variable [Unknown]
  - Pain [Not Recovered/Not Resolved]
  - Freezing phenomenon [Not Recovered/Not Resolved]
  - Stoma site erythema [Recovered/Resolved]
  - Stoma site discharge [Recovered/Resolved]
  - Therapeutic product effect incomplete [Unknown]
  - Freezing phenomenon [Recovering/Resolving]
  - Dyskinesia [Not Recovered/Not Resolved]
  - Fatigue [Not Recovered/Not Resolved]

NARRATIVE: CASE EVENT DATE: 20210101
